FAERS Safety Report 8486920-X (Version None)
Quarter: 2012Q3

REPORT INFORMATION
  Report Type: 
  Country: None (occurrence: None)
  Receive Date: 20120704
  Receipt Date: 20120627
  Transmission Date: 20120928
  Serious: Yes (Hospitalization)
  Sender: FDA-Public Use
  Company Number: IT-BRISTOL-MYERS SQUIBB COMPANY-16730541

PATIENT
  Age: 73 Year
  Sex: Female

DRUGS (8)
  1. ACTOS [Concomitant]
     Route: 048
  2. GLUCOPHAGE [Suspect]
     Indication: DIABETES MELLITUS
     Dosage: GLUCOPHAGE 1000MG
     Route: 048
     Dates: start: 20090101, end: 20120406
  3. FORZAAR [Concomitant]
     Dosage: 1DF= 100MG+25MG
     Route: 048
  4. TRAVATAN [Concomitant]
     Route: 047
  5. LESCOL [Concomitant]
     Route: 048
  6. ALENDROS [Concomitant]
     Route: 048
  7. ESCITALOPRAM [Concomitant]
     Route: 048
  8. ASPIRIN [Concomitant]
     Route: 048

REACTIONS (3)
  - NAUSEA [None]
  - VOMITING [None]
  - WEIGHT DECREASED [None]
